FAERS Safety Report 5175375-9 (Version None)
Quarter: 2006Q4

REPORT INFORMATION
  Report Type: 
  Country: None (occurrence: None)
  Receive Date: 20061215
  Receipt Date: 20061205
  Transmission Date: 20070319
  Serious: Yes (Hospitalization)
  Sender: FDA-Public Use
  Company Number: PHRM2006FR03248

PATIENT
  Sex: Male

DRUGS (1)
  1. VOLTARENE LP [Suspect]
     Dosage: 100 MG, UNK
     Route: 048
     Dates: end: 20060801

REACTIONS (1)
  - PULMONARY FIBROSIS [None]
